FAERS Safety Report 10576907 (Version 1)
Quarter: 2014Q4

REPORT INFORMATION
  Report Type: Spontaneous
  Country: EC (occurrence: EC)
  Receive Date: 20141111
  Receipt Date: 20141111
  Transmission Date: 20150529
  Serious: Yes (Other)
  Sender: FDA-Public Use
  Company Number: EC-PFIZER INC-2014309758

PATIENT
  Age: 73 Year
  Sex: Female

DRUGS (2)
  1. CARDURA [Suspect]
     Active Substance: DOXAZOSIN MESYLATE
     Dosage: 4 MG, UNK
     Route: 048
     Dates: end: 20141019
  2. LYRICA [Suspect]
     Active Substance: PREGABALIN
     Indication: NEURALGIA
     Dosage: 75 MG, UNK
     Route: 048
     Dates: end: 20141019

REACTIONS (1)
  - Gallbladder disorder [Unknown]
